FAERS Safety Report 12658490 (Version 1)
Quarter: 2016Q3

REPORT INFORMATION
  Report Type: Spontaneous
  Country: PL (occurrence: None)
  Receive Date: 20160816
  Receipt Date: 20160816
  Transmission Date: 20161109
  Serious: Yes (Disabling)
  Sender: FDA-Public Use
  Company Number: None

PATIENT
  Age: 65 Year
  Sex: Male
  Weight: 90 kg

DRUGS (5)
  1. ASPIFOX-ACIDUS [Concomitant]
  2. ATROX-ATORVASTATINUM [Concomitant]
  3. VALSARTAN. [Concomitant]
     Active Substance: VALSARTAN
  4. ATORVASTATIN [Suspect]
     Active Substance: ATORVASTATIN
  5. ACETYLCALECYLIUM [Concomitant]

REACTIONS (2)
  - Psoriasis [None]
  - Skin disorder [None]

NARRATIVE: CASE EVENT DATE: 20160720
